FAERS Safety Report 24938069 (Version 2)
Quarter: 2025Q1

REPORT INFORMATION
  Report Type: Report from Study
  Country: CA (occurrence: CA)
  Receive Date: 20250206
  Receipt Date: 20250218
  Transmission Date: 20250408
  Serious: Yes (Other)
  Sender: HLS THERAPEUTICS
  Company Number: CA-HLS-202500310

PATIENT
  Sex: Female
  Weight: 62 kg

DRUGS (1)
  1. CLOZARIL [Suspect]
     Active Substance: CLOZAPINE
     Indication: Product used for unknown indication
     Route: 048
     Dates: start: 20230428

REACTIONS (5)
  - Drug interaction [Unknown]
  - Panic reaction [Unknown]
  - Dizziness [Unknown]
  - Labelled drug-food interaction issue [Unknown]
  - Heart rate increased [Unknown]
